FAERS Safety Report 7176921-6 (Version None)
Quarter: 2010Q4

REPORT INFORMATION
  Report Type: 
  Country: None (occurrence: None)
  Receive Date: 20101220
  Receipt Date: 20101209
  Transmission Date: 20110411
  Serious: Yes (Other)
  Sender: FDA-Public Use
  Company Number: DE-B.I. PHARMACEUTICALS,INC./RIDGEFIELD-2010-DE-06053DE

PATIENT
  Age: 30 Year
  Sex: Female

DRUGS (2)
  1. VIRAMUNE [Suspect]
     Indication: HIV INFECTION
     Dosage: 400 MG
     Route: 048
     Dates: start: 19980224
  2. TRUVADA [Concomitant]
     Indication: HIV INFECTION
     Dosage: 300MG TENOFOVIR/200MG EMTRICITABIN
     Route: 048
     Dates: start: 20050715

REACTIONS (1)
  - CAESAREAN SECTION [None]
